FAERS Safety Report 9670344 (Version 1)
Quarter: 2013Q4

REPORT INFORMATION
  Report Type: Spontaneous
  Country: HR (occurrence: HR)
  Receive Date: 20131105
  Receipt Date: 20131105
  Transmission Date: 20140711
  Serious: Yes (Other)
  Sender: FDA-Public Use
  Company Number: PHHY2013HR123056

PATIENT
  Age: 32 Year
  Sex: Female

DRUGS (1)
  1. BELARA [Suspect]
     Indication: ANTIANDROGEN THERAPY
     Dosage: 1 DF, QD
     Route: 048
     Dates: start: 201212

REACTIONS (1)
  - Ovarian cyst [Unknown]
